FAERS Safety Report 23904899 (Version 1)
Quarter: 2024Q2

REPORT INFORMATION
  Report Type: Spontaneous
  Country: US (occurrence: US)
  Receive Date: 20240527
  Receipt Date: 20240527
  Transmission Date: 20240716
  Serious: No
  Sender: FDA-Public Use
  Company Number: US-VERTEX PHARMACEUTICALS-2024-008776

PATIENT
  Age: 23 Year
  Sex: Female

DRUGS (6)
  1. TRIKAFTA [Suspect]
     Active Substance: ELEXACAFTOR\IVACAFTOR\TEZACAFTOR
     Indication: Cystic fibrosis
     Dosage: UNK
     Route: 048
  2. ZOLOFT [Concomitant]
     Active Substance: SERTRALINE HYDROCHLORIDE
     Indication: Brain fog
  3. LEXAPRO [Concomitant]
     Active Substance: ESCITALOPRAM OXALATE
  4. LATUDA [Concomitant]
     Active Substance: LURASIDONE HYDROCHLORIDE
  5. BUPROPION [Concomitant]
     Active Substance: BUPROPION
     Dosage: 450
  6. LEVALBUTEROL [Concomitant]
     Active Substance: LEVALBUTEROL
     Dosage: UNK

REACTIONS (17)
  - Heart rate increased [Unknown]
  - Tremor [Unknown]
  - Hyperhidrosis [Unknown]
  - Pollakiuria [Unknown]
  - Confusional state [Unknown]
  - Feeling abnormal [Unknown]
  - Taste disorder [Unknown]
  - Urine output decreased [Unknown]
  - Chills [Unknown]
  - Eye pain [Unknown]
  - Memory impairment [Not Recovered/Not Resolved]
  - Asthenia [Recovering/Resolving]
  - Fatigue [Unknown]
  - Vision blurred [Unknown]
  - Dysphemia [Not Recovered/Not Resolved]
  - Pallor [Unknown]
  - Headache [Unknown]

NARRATIVE: CASE EVENT DATE: 20230101
